FAERS Safety Report 5239086-3 (Version None)
Quarter: 2007Q1

REPORT INFORMATION
  Report Type: 
  Country: None (occurrence: None)
  Receive Date: 20070209
  Receipt Date: 20070124
  Transmission Date: 20070707
  Serious: Yes (Life-Threatening, Hospitalization)
  Sender: FDA-Public Use
  Company Number: DSA_29291_2007

PATIENT
  Age: 35 Year
  Sex: Female

DRUGS (2)
  1. TAVOR                          /00273201/ [Suspect]
     Dosage: 50 MG ONCE PO
     Route: 048
     Dates: start: 20061228, end: 20061228
  2. DOXEPIN HCL [Suspect]
     Dosage: 1250 MG ONCE PO
     Route: 048
     Dates: start: 20061228, end: 20061228

REACTIONS (4)
  - MULTIPLE DRUG OVERDOSE INTENTIONAL [None]
  - RHABDOMYOLYSIS [None]
  - SOMNOLENCE [None]
  - SUICIDE ATTEMPT [None]
